FAERS Safety Report 13314110 (Version 3)
Quarter: 2017Q2

REPORT INFORMATION
  Report Type: Spontaneous
  Country: DE (occurrence: DE)
  Receive Date: 20170309
  Receipt Date: 20170421
  Transmission Date: 20170830
  Serious: Yes (Death, Congenital Anomaly)
  Sender: FDA-Public Use
  Company Number: DE-JNJFOC-20170309392

PATIENT
  Sex: Male

DRUGS (3)
  1. SIMPONI [Suspect]
     Active Substance: GOLIMUMAB
     Indication: ANKYLOSING SPONDYLITIS
     Dosage: FATHER^S DOSING
     Route: 064
     Dates: start: 201503
  2. SIMPONI [Suspect]
     Active Substance: GOLIMUMAB
     Indication: ANKYLOSING SPONDYLITIS
     Dosage: FATHER^S DOSING
     Route: 064
     Dates: start: 201302, end: 201412
  3. SIMPONI [Suspect]
     Active Substance: GOLIMUMAB
     Indication: ANKYLOSING SPONDYLITIS
     Dosage: FATHER^S DOSING
     Route: 064
     Dates: start: 201111, end: 201211

REACTIONS (2)
  - Foetal exposure during pregnancy [Recovered/Resolved]
  - Ellis-van Creveld syndrome [Fatal]
